FAERS Safety Report 24850851 (Version 1)
Quarter: 2025Q1

REPORT INFORMATION
  Report Type: Spontaneous
  Country: FR (occurrence: FR)
  Receive Date: 20250116
  Receipt Date: 20250116
  Transmission Date: 20250409
  Serious: Yes (Hospitalization)
  Sender: PAREXEL
  Company Number: FR-NOVEN PHARMACEUTICALS, INC.-2025-NOV-FR000080

PATIENT
  Age: 17 Year
  Sex: Female

DRUGS (1)
  1. METHYLPHENIDATE [Suspect]
     Active Substance: METHYLPHENIDATE
     Indication: Attention deficit hyperactivity disorder
     Dosage: 36 MG, DAILY
     Route: 062

REACTIONS (1)
  - Reversible cerebral vasoconstriction syndrome [Recovered/Resolved]
